FAERS Safety Report 4976051-5 (Version None)
Quarter: 2006Q2

REPORT INFORMATION
  Report Type: 
  Country: None (occurrence: None)
  Receive Date: 20060411
  Receipt Date: 20051018
  Transmission Date: 20061013
  Serious: Yes (Hospitalization, Other)
  Sender: FDA-Public Use
  Company Number: 2006040889

PATIENT
  Age: 58 Year
  Sex: Female
  Weight: 94.3482 kg

DRUGS (4)
  1. CELEBREX [Suspect]
     Indication: ARTHRITIS
     Dosage: 200 MG (200 MG, 1 IN 1 D); ORAL
     Route: 048
     Dates: start: 20010912, end: 20010914
  2. PHENTERMINE [Concomitant]
  3. CUTIVATE (FLUTICASONE PROPIONATE) [Concomitant]
  4. PREMARIN [Concomitant]

REACTIONS (60)
  - ACNE [None]
  - ALOPECIA [None]
  - ANGIOPATHY [None]
  - ARRHYTHMIA [None]
  - ARTHRALGIA [None]
  - ASTHENIA [None]
  - ATELECTASIS [None]
  - ATRIAL FLUTTER [None]
  - BLOOD GLUCOSE INCREASED [None]
  - BLOOD PRESSURE INCREASED [None]
  - CHEST PAIN [None]
  - CHRONIC FATIGUE SYNDROME [None]
  - DECREASED APPETITE [None]
  - DERMATITIS [None]
  - DIARRHOEA [None]
  - DRUG ERUPTION [None]
  - DRUG HYPERSENSITIVITY [None]
  - DYSPHAGIA [None]
  - DYSPNOEA [None]
  - DYSSTASIA [None]
  - HAEMATOCRIT DECREASED [None]
  - HAEMOGLOBIN DECREASED [None]
  - HYPOTHYROIDISM [None]
  - JOINT SWELLING [None]
  - LEUKOCYTOSIS [None]
  - LUNG INFILTRATION [None]
  - MUSCLE ATROPHY [None]
  - MUSCLE INJURY [None]
  - MUSCULOSKELETAL PAIN [None]
  - MYALGIA [None]
  - MYOCARDIAL INFARCTION [None]
  - MYOPATHY [None]
  - NAUSEA [None]
  - OEDEMA PERIPHERAL [None]
  - PAIN [None]
  - PALPITATIONS [None]
  - PERICARDIAL DISEASE [None]
  - PERICARDITIS [None]
  - PHARYNGOLARYNGEAL PAIN [None]
  - PLEURAL EFFUSION [None]
  - PLEURISY [None]
  - POLYARTHRITIS [None]
  - POLYNEUROPATHY [None]
  - PRURITUS [None]
  - PYREXIA [None]
  - RASH [None]
  - RASH ERYTHEMATOUS [None]
  - RASH PAPULAR [None]
  - RENAL IMPAIRMENT [None]
  - SCREAMING [None]
  - SENSORY LOSS [None]
  - SEROSITIS [None]
  - SHOULDER PAIN [None]
  - SLEEP DISORDER [None]
  - SUPRAVENTRICULAR TACHYCARDIA [None]
  - SWELLING [None]
  - SYSTEMIC INFLAMMATORY RESPONSE SYNDROME [None]
  - VASCULITIS [None]
  - VOMITING [None]
  - WHITE BLOOD CELL COUNT INCREASED [None]
